FAERS Safety Report 5366658-8 (Version None)
Quarter: 2007Q2

REPORT INFORMATION
  Report Type: 
  Country: None (occurrence: None)
  Receive Date: 20070622
  Receipt Date: 20070612
  Transmission Date: 20071010
  Serious: Yes (Hospitalization)
  Sender: FDA-Public Use
  Company Number: JP-JNJFOC-20070302293

PATIENT
  Sex: Female
  Weight: 43 kg

DRUGS (17)
  1. REMICADE [Suspect]
  2. REMICADE [Suspect]
     Dosage: 11 INFUSIONS - DATES UNKNOWN
  3. REMICADE [Suspect]
  4. REMICADE [Suspect]
  5. REMICADE [Suspect]
  6. REMICADE [Suspect]
  7. REMICADE [Suspect]
  8. REMICADE [Suspect]
     Indication: RHEUMATOID ARTHRITIS
  9. PREDONINE [Suspect]
     Indication: RHEUMATOID ARTHRITIS
     Route: 048
  10. RHEUMATREX [Suspect]
     Route: 048
  11. RHEUMATREX [Suspect]
     Route: 048
  12. RHEUMATREX [Suspect]
     Indication: RHEUMATOID ARTHRITIS
     Route: 048
  13. CLINORIL [Concomitant]
     Indication: RHEUMATOID ARTHRITIS
     Route: 048
  14. KELNAC [Concomitant]
     Route: 048
  15. SUCRALFATE [Concomitant]
     Route: 048
  16. GASTER D [Concomitant]
     Route: 048
  17. OSTEN [Concomitant]
     Route: 048

REACTIONS (1)
  - ATYPICAL MYCOBACTERIAL INFECTION [None]
